FAERS Safety Report 24777703 (Version 8)
Quarter: 2025Q2

REPORT INFORMATION
  Report Type: Spontaneous
  Country: JP (occurrence: JP)
  Receive Date: 20241226
  Receipt Date: 20250612
  Transmission Date: 20250717
  Serious: Yes (Death, Life-Threatening, Disabling, Other)
  Sender: ALEXION PHARMACEUTICALS
  Company Number: JP-AstraZeneca-CH-00773849A

PATIENT
  Age: 77 Year
  Weight: 75 kg

DRUGS (13)
  1. ULTOMIRIS [Suspect]
     Active Substance: RAVULIZUMAB-CWVZ
     Indication: Myasthenia gravis
     Dosage: 2700 MILLIGRAM, Q8W
  2. DAYVIGO [Concomitant]
     Active Substance: LEMBOREXANT
     Indication: Insomnia
  3. WARFARIN [Concomitant]
     Active Substance: WARFARIN
     Indication: Deep vein thrombosis
     Dosage: 1 MILLIGRAM, QD
  4. PREDONINE [Concomitant]
     Active Substance: PREDNISOLONE
     Indication: Myasthenia gravis
     Dosage: 5 MILLIGRAM, QD
  5. PREDONINE [Concomitant]
     Active Substance: PREDNISOLONE
     Dosage: 10 MILLIGRAM, QD
  6. PREDONINE [Concomitant]
     Active Substance: PREDNISOLONE
     Dosage: 15 MILLIGRAM, QD
  7. PREDONINE [Concomitant]
     Active Substance: PREDNISOLONE
     Dosage: 20 MILLIGRAM, QD
  8. PREDONINE [Concomitant]
     Active Substance: PREDNISOLONE
  9. PREDONINE [Concomitant]
     Active Substance: PREDNISOLONE
  10. PREDONINE [Concomitant]
     Active Substance: PREDNISOLONE
     Dosage: 5 MILLIGRAM, QD
  11. LANSOPRAZOLE [Concomitant]
     Active Substance: LANSOPRAZOLE
     Indication: Myasthenia gravis
     Dosage: 15 MILLIGRAM, QD
  12. ELOBIXIBAT [Concomitant]
     Active Substance: ELOBIXIBAT
     Indication: Constipation
     Dosage: 10 MILLIGRAM, QD
  13. BONALON [Concomitant]
     Active Substance: ALENDRONATE SODIUM
     Indication: Myasthenia gravis
     Dosage: 35 MILLIGRAM, QW

REACTIONS (12)
  - Pneumonia aspiration [Fatal]
  - Pneumococcal sepsis [Fatal]
  - Azotaemia [Fatal]
  - Acute kidney injury [Fatal]
  - Plasma cell myeloma [Fatal]
  - Loss of personal independence in daily activities [Fatal]
  - Aspiration [Recovering/Resolving]
  - Deep vein thrombosis [Recovering/Resolving]
  - Disseminated intravascular coagulation [Recovering/Resolving]
  - Cellulitis [Recovering/Resolving]
  - Asthenia [Recovering/Resolving]
  - Somnolence [Recovering/Resolving]
